FAERS Safety Report 9490805 (Version 3)
Quarter: 2013Q4

REPORT INFORMATION
  Report Type: Spontaneous
  Country: DK (occurrence: DK)
  Receive Date: 20130830
  Receipt Date: 20131202
  Transmission Date: 20140711
  Serious: Yes (Other)
  Sender: FDA-Public Use
  Company Number: DK-PFIZER INC-2013246824

PATIENT
  Age: 50 Year
  Sex: Male

DRUGS (2)
  1. SILDENAFIL CITRATE [Suspect]
     Dosage: 100 MG, SINGLE
     Route: 048
  2. LYMECYCLINE [Concomitant]
     Dosage: UNK

REACTIONS (5)
  - Intentional drug misuse [Unknown]
  - Self-medication [Unknown]
  - Thrombosis corpora cavernosa [Recovered/Resolved]
  - Priapism [Recovered/Resolved]
  - Erectile dysfunction [Unknown]
